FAERS Safety Report 14652984 (Version 2)
Quarter: 2018Q2

REPORT INFORMATION
  Report Type: Spontaneous
  Country: JP (occurrence: JP)
  Receive Date: 20180319
  Receipt Date: 20180403
  Transmission Date: 20180711
  Serious: Yes (Death, Other)
  Sender: FDA-Public Use
  Company Number: JP-009507513-1711JPN002864J

PATIENT
  Age: 65 Year
  Sex: Male

DRUGS (1)
  1. KEYTRUDA [Suspect]
     Active Substance: PEMBROLIZUMAB
     Indication: SQUAMOUS CELL CARCINOMA OF LUNG
     Dosage: 200 MG, Q3W
     Route: 041
     Dates: start: 20170919, end: 20171122

REACTIONS (6)
  - Lymphadenopathy [Recovered/Resolved]
  - Acute respiratory failure [Unknown]
  - Malignant neoplasm progression [Fatal]
  - Face oedema [Unknown]
  - Face oedema [Recovered/Resolved]
  - Oedema peripheral [Recovered/Resolved]

NARRATIVE: CASE EVENT DATE: 2017
